FAERS Safety Report 11239792 (Version 1)
Quarter: 2015Q3

REPORT INFORMATION
  Report Type: Spontaneous
  Country: US (occurrence: None)
  Receive Date: 20150701
  Receipt Date: 20150701
  Transmission Date: 20151125
  Serious: No
  Sender: FDA-Public Use
  Company Number: None

PATIENT
  Sex: Female

DRUGS (2)
  1. DEPAKOTE ER [Suspect]
     Active Substance: DIVALPROEX SODIUM
  2. DEPAKOTE [Suspect]
     Active Substance: DIVALPROEX SODIUM

REACTIONS (1)
  - Drug dispensing error [None]

NARRATIVE: CASE EVENT DATE: 2015
